FAERS Safety Report 5588657-3 (Version None)
Quarter: 2008Q1

REPORT INFORMATION
  Report Type: 
  Country: None (occurrence: None)
  Receive Date: 20080111
  Receipt Date: 20080107
  Transmission Date: 20080703
  Serious: Yes (Life-Threatening)
  Sender: FDA-Public Use
  Company Number: TR-ASTRAZENECA-2008SE00094

PATIENT
  Age: 48 Year
  Sex: Male

DRUGS (4)
  1. ROSUVASTATIN [Suspect]
  2. METOPROLOL [Suspect]
  3. BELOC [Concomitant]
  4. ACETYLSALICYLIC ACID SRT [Concomitant]

REACTIONS (1)
  - TORSADE DE POINTES [None]
